FAERS Safety Report 8379162 (Version 2)
Quarter: 2013Q1

REPORT INFORMATION
  Report Type: Report from Study
  Country: US (occurrence: US)
  Receive Date: 20120129
  Receipt Date: 20130129
  Transmission Date: 20140127
  Serious: Yes (Hospitalization)
  Sender: FDA-Public Use
  Company Number: US-ABBOTT-11P-163-0861533-00

PATIENT
  Age: 43 Year
  Sex: Female

DRUGS (7)
  1. HUMIRA 40 MG/0.8 ML PEN [Suspect]
     Indication: PSORIATIC ARTHROPATHY
     Route: 058
     Dates: start: 201107
  2. TAZORAC [Concomitant]
     Indication: PSORIASIS
  3. CLEPIADAZOLE [Concomitant]
     Indication: PRODUCT USED FOR UNKNOWN INDICATION
  4. OXYCODONE [Concomitant]
     Indication: ARTHRALGIA
  5. OXYCODONE [Concomitant]
     Indication: BACK PAIN
  6. NAPROXEN [Concomitant]
     Indication: PRODUCT USED FOR UNKNOWN INDICATION
  7. SAVELLA [Concomitant]
     Indication: FIBROMYALGIA

REACTIONS (4)
  - Furuncle [Recovered/Resolved]
  - Wheezing [Recovered/Resolved]
  - Immunosuppression [Unknown]
  - Decreased immune responsiveness [Unknown]
